FAERS Safety Report 10495933 (Version 1)
Quarter: 2014Q4

REPORT INFORMATION
  Report Type: Spontaneous
  Country: DE (occurrence: DE)
  Receive Date: 20141003
  Receipt Date: 20141003
  Transmission Date: 20150528
  Serious: Yes (Life-Threatening, Other)
  Sender: FDA-Public Use
  Company Number: DE-CUBIST PHARMACEUTICALS, INC.-2014CBST001345

PATIENT

DRUGS (2)
  1. CUBICIN [Suspect]
     Active Substance: DAPTOMYCIN
     Dosage: UNK UNK, UNK (VIA CATHETER) INFUSION
  2. CUBICIN [Suspect]
     Active Substance: DAPTOMYCIN
     Indication: INFECTION
     Dosage: 4 MG/KG, UNK (2 MIN VIA CATHETER)
     Route: 040

REACTIONS (3)
  - Fear of death [Recovered/Resolved]
  - Blood creatinine increased [Recovered/Resolved]
  - Cardiac disorder [Recovered/Resolved]
